FAERS Safety Report 18189862 (Version 1)
Quarter: 2020Q3

REPORT INFORMATION
  Report Type: Spontaneous
  Country: US (occurrence: US)
  Receive Date: 20200825
  Receipt Date: 20200825
  Transmission Date: 20201103
  Serious: No
  Sender: FDA-Public Use
  Company Number: US-BAUSCH-BL-2020-022412

PATIENT
  Sex: Male

DRUGS (1)
  1. ATIVAN [Suspect]
     Active Substance: LORAZEPAM
     Indication: PRODUCT USED FOR UNKNOWN INDICATION
     Dosage: BATCH NUMBER: ATR 005 OR ATR C05
     Route: 065

REACTIONS (3)
  - Panic disorder [Unknown]
  - Anxiety [Unknown]
  - Product availability issue [Unknown]
